FAERS Safety Report 16108052 (Version 1)
Quarter: 2019Q1

REPORT INFORMATION
  Report Type: Spontaneous
  Country: GB (occurrence: GB)
  Receive Date: 20190322
  Receipt Date: 20190322
  Transmission Date: 20190418
  Serious: Yes (Other)
  Sender: FDA-Public Use
  Company Number: GB-GLAXOSMITHKLINE-GB2019GSK048238

PATIENT
  Age: 79 Year
  Sex: Female

DRUGS (1)
  1. SERETIDE [Suspect]
     Active Substance: FLUTICASONE PROPIONATE\SALMETEROL XINAFOATE
     Indication: CHRONIC OBSTRUCTIVE PULMONARY DISEASE
     Dosage: UNK(2PUFFS IN MORNING AND 2 PUFFS AT NIGHT )

REACTIONS (15)
  - Pruritus generalised [Unknown]
  - Pain [Unknown]
  - Abdominal pain upper [Unknown]
  - Headache [Unknown]
  - Bone pain [Unknown]
  - African trypanosomiasis [Unknown]
  - Off label use [Unknown]
  - Feeling abnormal [Unknown]
  - Malaise [Unknown]
  - Somnolence [Unknown]
  - Alopecia [Unknown]
  - Fatigue [Unknown]
  - Decreased appetite [Unknown]
  - Product complaint [Unknown]
  - Arthralgia [Unknown]
